FAERS Safety Report 13588927 (Version 2)
Quarter: 2017Q2

REPORT INFORMATION
  Report Type: Spontaneous
  Country: JP (occurrence: JP)
  Receive Date: 20170529
  Receipt Date: 20170531
  Transmission Date: 20170830
  Serious: Yes (Other)
  Sender: FDA-Public Use
  Company Number: JP-009507513-1705JPN002611J

PATIENT

DRUGS (3)
  1. PEGINTRON [Suspect]
     Active Substance: PEGINTERFERON ALFA-2B
     Indication: CHRONIC HEPATITIS C
     Dosage: UNK
     Route: 051
  2. TELAVIC [Suspect]
     Active Substance: TELAPREVIR
     Indication: CHRONIC HEPATITIS C
     Route: 048
  3. REBETOL [Suspect]
     Active Substance: RIBAVIRIN
     Indication: CHRONIC HEPATITIS C
     Dosage: UNK
     Route: 048

REACTIONS (9)
  - Adverse event [Unknown]
  - Malaise [Unknown]
  - Cerebral haemorrhage [Unknown]
  - Interstitial lung disease [Unknown]
  - Retinopathy [Unknown]
  - Anaemia [Unknown]
  - Thrombocytopenia [Unknown]
  - Neurosis [Unknown]
  - Decreased appetite [Unknown]
